FAERS Safety Report 8142375-6 (Version None)
Quarter: 2012Q1

REPORT INFORMATION
  Report Type: 
  Country: None (occurrence: None)
  Receive Date: 20120216
  Receipt Date: 20120210
  Transmission Date: 20120608
  Serious: Yes (Other)
  Sender: FDA-Public Use
  Company Number: PHHY2012HU007939

PATIENT
  Age: 77 Year
  Sex: Female

DRUGS (5)
  1. VITAMIN D [Concomitant]
     Dosage: UNK UKN, UNK
  2. SYNCUMAR [Concomitant]
     Indication: HEART VALVE REPLACEMENT
     Dosage: UNK UKN, UNK
  3. ZOLEDRONOC ACID [Suspect]
     Dosage: 5 MG, UNK
     Route: 042
     Dates: start: 20110502
  4. ZOLEDRONOC ACID [Suspect]
     Indication: OSTEOPOROSIS
     Dosage: 5 MG, YEARLY
     Route: 042
     Dates: start: 20100416
  5. CALCIUM [Concomitant]
     Dosage: UNK UKN, UNK

REACTIONS (1)
  - INTERNATIONAL NORMALISED RATIO INCREASED [None]
